FAERS Safety Report 5624168-4 (Version None)
Quarter: 2008Q1

REPORT INFORMATION
  Report Type: 
  Country: None (occurrence: None)
  Receive Date: 20080213
  Receipt Date: 20080201
  Transmission Date: 20080703
  Serious: Yes (Death)
  Sender: FDA-Public Use
  Company Number: US-NOVOPROD-270839

PATIENT

DRUGS (2)
  1. NOVOSEVEN [Suspect]
     Indication: POST PROCEDURAL HAEMORRHAGE
     Dosage: 87 UG/KG, SINGLE
     Route: 042
     Dates: start: 20071213
  2. PROTAMINE SULFATE [Concomitant]

REACTIONS (1)
  - THROMBOSIS [None]
